FAERS Safety Report 8600529-6 (Version None)
Quarter: 2012Q3

REPORT INFORMATION
  Report Type: 
  Country: None (occurrence: None)
  Receive Date: 20120817
  Receipt Date: 20120810
  Transmission Date: 20120928
  Serious: No
  Sender: FDA-Public Use
  Company Number: US-PFIZER INC-2012197579

PATIENT
  Age: 49 Year
  Sex: Female

DRUGS (2)
  1. CLARITHROMYCIN [Suspect]
     Dosage: UNK
  2. XALKORI [Suspect]
     Indication: LUNG NEOPLASM MALIGNANT
     Dosage: 200 MG, 1X/DAY
     Route: 048
     Dates: start: 20110928

REACTIONS (1)
  - DIZZINESS [None]
